FAERS Safety Report 6308182-1 (Version None)
Quarter: 2009Q3

REPORT INFORMATION
  Report Type: 
  Country: None (occurrence: None)
  Receive Date: 20090813
  Receipt Date: 20090804
  Transmission Date: 20100115
  Serious: Yes (Other)
  Sender: FDA-Public Use
  Company Number: GB-PFIZER INC-2009249792

PATIENT
  Age: 52 Year

DRUGS (10)
  1. CLINDAMYCIN PHOSPHATE [Suspect]
     Indication: POSTOPERATIVE CARE
     Dosage: 600 MG, UNK
     Route: 042
     Dates: start: 20090707, end: 20090708
  2. ACETAMINOPHEN W/ CODEINE [Interacting]
  3. ORAMORPH SR [Interacting]
     Indication: PAIN
     Dosage: 20 MG, 4X/DAY
     Route: 048
     Dates: start: 20090704, end: 20090708
  4. BISOPROLOL [Concomitant]
  5. CHLORPHENAMINE [Concomitant]
  6. CITALOPRAM [Concomitant]
  7. DICLOFENAC SODIUM [Concomitant]
  8. FERROUS FUMARATE [Concomitant]
  9. SENNA [Concomitant]
  10. SIMVASTATIN [Concomitant]

REACTIONS (3)
  - BLISTER [None]
  - DRUG INTERACTION [None]
  - STEVENS-JOHNSON SYNDROME [None]
